FAERS Safety Report 15561534 (Version 1)
Quarter: 2018Q4

REPORT INFORMATION
  Report Type: Spontaneous
  Country: JP (occurrence: JP)
  Receive Date: 20181029
  Receipt Date: 20181029
  Transmission Date: 20190205
  Serious: Yes (Death, Life-Threatening, Other)
  Sender: FDA-Public Use
  Company Number: JP-TEVA-2018-JP-967701

PATIENT
  Age: 57 Year
  Sex: Female

DRUGS (3)
  1. FLUDARABINE [Suspect]
     Active Substance: FLUDARABINE PHOSPHATE
     Indication: CHEMOTHERAPY
     Dosage: 25 MG/M2 DAILY;
     Route: 042
     Dates: start: 20180926, end: 20180927
  2. BENDAMUSTINE HYDROCHLORIDE. [Suspect]
     Active Substance: BENDAMUSTINE HYDROCHLORIDE
     Indication: B-CELL LYMPHOMA
     Route: 042
     Dates: start: 20180926, end: 20180927
  3. CYCLOPHOSPHAMIDE. [Suspect]
     Active Substance: CYCLOPHOSPHAMIDE
     Indication: CHEMOTHERAPY
     Dosage: 1000 MG/M2 DAILY;
     Route: 042
     Dates: start: 20180926, end: 20180928

REACTIONS (4)
  - Pyrexia [Fatal]
  - Septic shock [Fatal]
  - Neutrophil count decreased [Fatal]
  - Swelling [Fatal]

NARRATIVE: CASE EVENT DATE: 20181004
